FAERS Safety Report 25553256 (Version 1)
Quarter: 2025Q3

REPORT INFORMATION
  Report Type: Spontaneous
  Country: US (occurrence: US)
  Receive Date: 20250715
  Receipt Date: 20250715
  Transmission Date: 20251021
  Serious: Yes (Other)
  Sender: STRIDES
  Company Number: US-STRIDES PHARMA UK LTD.-2025SP008452

PATIENT
  Age: 30 Year
  Sex: Male

DRUGS (51)
  1. TACROLIMUS [Suspect]
     Active Substance: TACROLIMUS
     Indication: Autoimmune enteropathy
     Route: 065
  2. TACROLIMUS [Suspect]
     Active Substance: TACROLIMUS
     Indication: Autoimmune hepatitis
     Route: 065
  3. TACROLIMUS [Suspect]
     Active Substance: TACROLIMUS
     Indication: Polyglandular autoimmune syndrome type I
  4. MYCOPHENOLATE MOFETIL [Suspect]
     Active Substance: MYCOPHENOLATE MOFETIL
     Indication: Autoimmune enteropathy
     Route: 065
  5. MYCOPHENOLATE MOFETIL [Suspect]
     Active Substance: MYCOPHENOLATE MOFETIL
     Indication: Polyglandular autoimmune syndrome type I
     Route: 065
  6. MYCOPHENOLATE MOFETIL [Suspect]
     Active Substance: MYCOPHENOLATE MOFETIL
     Route: 065
  7. HYDROCORTISONE [Suspect]
     Active Substance: HYDROCORTISONE
     Indication: Adrenal insufficiency
     Route: 065
  8. AZATHIOPRINE [Suspect]
     Active Substance: AZATHIOPRINE
     Indication: Polyglandular autoimmune syndrome type I
     Route: 065
  9. URSODIOL [Suspect]
     Active Substance: URSODIOL
     Indication: Enteritis
     Route: 065
  10. URSODIOL [Suspect]
     Active Substance: URSODIOL
     Indication: Gastritis
  11. VANCOMYCIN [Suspect]
     Active Substance: VANCOMYCIN
     Indication: Mucocutaneous candidiasis
     Route: 065
  12. VANCOMYCIN [Suspect]
     Active Substance: VANCOMYCIN
     Indication: Oesophageal candidiasis
  13. VANCOMYCIN [Suspect]
     Active Substance: VANCOMYCIN
     Indication: Gastritis
  14. VANCOMYCIN [Suspect]
     Active Substance: VANCOMYCIN
     Indication: Enteritis
  15. CYCLOSPORINE [Suspect]
     Active Substance: CYCLOSPORINE
     Indication: Sjogren^s syndrome
     Route: 047
  16. CYCLOSPORINE [Suspect]
     Active Substance: CYCLOSPORINE
     Indication: Polyglandular autoimmune syndrome type I
  17. FLUDROCORTISONE [Suspect]
     Active Substance: FLUDROCORTISONE
     Indication: Adrenal insufficiency
     Route: 065
  18. METHYLPREDNISOLONE [Suspect]
     Active Substance: METHYLPREDNISOLONE
     Indication: Adrenal insufficiency
     Route: 065
  19. METHYLPREDNISOLONE [Suspect]
     Active Substance: METHYLPREDNISOLONE
     Indication: Polyglandular autoimmune syndrome type I
  20. BUDESONIDE [Suspect]
     Active Substance: BUDESONIDE
     Indication: Autoimmune enteropathy
     Route: 065
  21. BUDESONIDE [Suspect]
     Active Substance: BUDESONIDE
     Indication: Polyglandular autoimmune syndrome type I
  22. HUMAN IMMUNOGLOBULIN G [Suspect]
     Active Substance: HUMAN IMMUNOGLOBULIN G
     Indication: Polyglandular autoimmune syndrome type I
     Route: 042
  23. HUMAN IMMUNOGLOBULIN G [Suspect]
     Active Substance: HUMAN IMMUNOGLOBULIN G
     Indication: Autoimmune enteropathy
  24. HYDROXYCHLOROQUINE [Suspect]
     Active Substance: HYDROXYCHLOROQUINE
     Indication: Polyglandular autoimmune syndrome type I
     Route: 065
  25. UPADACITINIB [Concomitant]
     Active Substance: UPADACITINIB
     Indication: Polyglandular autoimmune syndrome type I
     Route: 065
  26. UPADACITINIB [Concomitant]
     Active Substance: UPADACITINIB
     Route: 065
  27. INSULIN NOS [Concomitant]
     Active Substance: INSULIN NOS
     Indication: Diabetes mellitus
     Route: 065
  28. FLUCONAZOLE [Concomitant]
     Active Substance: FLUCONAZOLE
     Indication: Mucocutaneous candidiasis
     Route: 065
  29. FLUCONAZOLE [Concomitant]
     Active Substance: FLUCONAZOLE
     Indication: Oesophageal candidiasis
  30. NYSTATIN [Concomitant]
     Active Substance: NYSTATIN
     Indication: Mucocutaneous candidiasis
     Route: 065
  31. NYSTATIN [Concomitant]
     Active Substance: NYSTATIN
     Indication: Oesophageal candidiasis
  32. RIFAXIMIN [Concomitant]
     Active Substance: RIFAXIMIN
     Indication: Mucocutaneous candidiasis
     Route: 065
  33. RIFAXIMIN [Concomitant]
     Active Substance: RIFAXIMIN
     Indication: Oesophageal candidiasis
  34. RIFAXIMIN [Concomitant]
     Active Substance: RIFAXIMIN
     Indication: Gastritis
  35. RIFAXIMIN [Concomitant]
     Active Substance: RIFAXIMIN
     Indication: Enteritis
  36. GENTAMICIN [Concomitant]
     Active Substance: GENTAMICIN
     Indication: Mucocutaneous candidiasis
     Route: 045
  37. GENTAMICIN [Concomitant]
     Active Substance: GENTAMICIN
     Indication: Oesophageal candidiasis
  38. SALINE [Concomitant]
     Active Substance: SODIUM CHLORIDE
     Indication: Mucocutaneous candidiasis
     Route: 045
  39. SALINE [Concomitant]
     Active Substance: SODIUM CHLORIDE
     Indication: Oesophageal candidiasis
  40. SULFAMETHOXAZOLE\TRIMETHOPRIM [Concomitant]
     Active Substance: SULFAMETHOXAZOLE\TRIMETHOPRIM
     Indication: Mucocutaneous candidiasis
     Route: 065
  41. SULFAMETHOXAZOLE\TRIMETHOPRIM [Concomitant]
     Active Substance: SULFAMETHOXAZOLE\TRIMETHOPRIM
     Indication: Oesophageal candidiasis
  42. AMPHOTERICIN B [Concomitant]
     Active Substance: AMPHOTERICIN B
     Indication: Mucocutaneous candidiasis
     Route: 065
  43. AMPHOTERICIN B [Concomitant]
     Active Substance: AMPHOTERICIN B
     Indication: Oesophageal candidiasis
  44. CALCIUM [Concomitant]
     Active Substance: CALCIUM
     Indication: Hypoparathyroidism
     Route: 065
  45. VITAMIN D [Concomitant]
     Active Substance: VITAMIN D NOS
     Indication: Hypoparathyroidism
     Route: 065
  46. ESOMEPRAZOLE [Concomitant]
     Active Substance: ESOMEPRAZOLE
     Indication: Gastritis
     Route: 065
  47. ESOMEPRAZOLE [Concomitant]
     Active Substance: ESOMEPRAZOLE
     Indication: Enteritis
  48. COLESEVELAM [Concomitant]
     Active Substance: COLESEVELAM
     Indication: Gastritis
     Route: 065
  49. COLESEVELAM [Concomitant]
     Active Substance: COLESEVELAM
     Indication: Enteritis
     Route: 065
  50. IRON [Concomitant]
     Active Substance: IRON
     Indication: Malnutrition
     Route: 065
  51. IRON [Concomitant]
     Active Substance: IRON
     Indication: Iron deficiency anaemia

REACTIONS (6)
  - Type 1 diabetes mellitus [Recovering/Resolving]
  - Monogenic diabetes [Recovering/Resolving]
  - Nephropathy toxic [Unknown]
  - Cataract [Unknown]
  - Therapy non-responder [Unknown]
  - Off label use [Unknown]
